FAERS Safety Report 8218329-8 (Version None)
Quarter: 2012Q1

REPORT INFORMATION
  Report Type: 
  Country: None (occurrence: None)
  Receive Date: 20120319
  Receipt Date: 20120313
  Transmission Date: 20120608
  Serious: Yes (Hospitalization)
  Sender: FDA-Public Use
  Company Number: US-GLAXOSMITHKLINE-A0915692A

PATIENT
  Age: 55 Year
  Sex: Male
  Weight: 118.2 kg

DRUGS (7)
  1. METFORMIN HYDROCHLORIDE [Concomitant]
  2. AVANDARYL [Suspect]
     Indication: DIABETES MELLITUS
     Dosage: 1TAB PER DAY
     Route: 048
     Dates: start: 20060901, end: 20100701
  3. AVANDIA [Suspect]
     Indication: DIABETES MELLITUS
     Route: 048
  4. OXYCONTIN [Concomitant]
  5. CYMBALTA [Concomitant]
  6. PROVIGIL [Concomitant]
  7. FLOMAX [Concomitant]

REACTIONS (6)
  - RENAL FAILURE ACUTE [None]
  - RENAL FAILURE CHRONIC [None]
  - PULMONARY HYPERTENSION [None]
  - CORONARY ARTERY DISEASE [None]
  - HYPERLIPIDAEMIA [None]
  - HYPERTENSION [None]
